FAERS Safety Report 5921565-4 (Version None)
Quarter: 2008Q4

REPORT INFORMATION
  Report Type: 
  Country: None (occurrence: None)
  Receive Date: 20081016
  Receipt Date: 20081016
  Transmission Date: 20090506
  Serious: No
  Sender: FDA-Public Use
  Company Number: None

PATIENT
  Sex: Male
  Weight: 90.7194 kg

DRUGS (2)
  1. VIVITROL [Suspect]
     Indication: ALCOHOL USE
     Dosage: 380MG MONTHLY IM
     Route: 030
     Dates: start: 20081006
  2. VIVITROL [Suspect]
     Indication: OPIATES
     Dosage: 380MG MONTHLY IM
     Route: 030
     Dates: start: 20081006

REACTIONS (5)
  - NAUSEA [None]
  - PRURITUS [None]
  - RASH [None]
  - TACHYCARDIA [None]
  - WHEEZING [None]
